FAERS Safety Report 23862219 (Version 1)
Quarter: 2024Q2

REPORT INFORMATION
  Report Type: Spontaneous
  Country: PE (occurrence: PE)
  Receive Date: 20240516
  Receipt Date: 20240516
  Transmission Date: 20240716
  Serious: Yes (Hospitalization)
  Sender: FDA-Public Use
  Company Number: PE-STRIDES ARCOLAB LIMITED-2024SP005653

PATIENT
  Age: 59 Year
  Sex: Male

DRUGS (4)
  1. PREDNISOLONE [Suspect]
     Active Substance: PREDNISOLONE
     Indication: Paraneoplastic hypoglycaemia
     Dosage: 20 MILLIGRAM, QD; 24 HOURS
     Route: 065
  2. PREDNISOLONE [Suspect]
     Active Substance: PREDNISOLONE
     Dosage: 20 MILLIGRAM, QD; 24 HOURS
     Route: 065
  3. DEXTROSE [Suspect]
     Active Substance: DEXTROSE\DEXTROSE MONOHYDRATE
     Indication: Paraneoplastic hypoglycaemia
     Dosage: UNK
     Route: 065
  4. OCTREOTIDE [Concomitant]
     Active Substance: OCTREOTIDE\OCTREOTIDE ACETATE
     Indication: Paraneoplastic hypoglycaemia
     Dosage: UNK
     Route: 065

REACTIONS (2)
  - Drug ineffective [Unknown]
  - Treatment noncompliance [Unknown]
